FAERS Safety Report 6366109-0 (Version None)
Quarter: 2009Q3

REPORT INFORMATION
  Report Type: 
  Country: None (occurrence: None)
  Receive Date: 20090920
  Receipt Date: 20090622
  Transmission Date: 20100115
  Serious: No
  Sender: FDA-Public Use
  Company Number: US-BAUSCH-2009BL003134

PATIENT
  Sex: Female

DRUGS (1)
  1. ALAWAY [Suspect]
     Route: 047

REACTIONS (1)
  - EYE IRRITATION [None]
